FAERS Safety Report 15962890 (Version 1)
Quarter: 2019Q1

REPORT INFORMATION
  Report Type: Spontaneous
  Country: UA (occurrence: UA)
  Receive Date: 20190214
  Receipt Date: 20190214
  Transmission Date: 20190417
  Serious: Yes (Other)
  Sender: FDA-Public Use
  Company Number: UA-ASTRAZENECA-2019SE22626

PATIENT
  Age: 9 Year
  Sex: Male

DRUGS (1)
  1. PULMICORT RESPULES [Suspect]
     Active Substance: BUDESONIDE
     Dosage: 0.5 MG / ML. INHALATION 2 TIMES / DAY
     Route: 055

REACTIONS (5)
  - Oral candidiasis [Unknown]
  - Asthenia [Unknown]
  - Decreased appetite [Unknown]
  - Tonsillitis fungal [Unknown]
  - Wrong technique in product usage process [Unknown]
